FAERS Safety Report 7331445-8 (Version None)
Quarter: 2011Q1

REPORT INFORMATION
  Report Type: 
  Country: None (occurrence: None)
  Receive Date: 20110224
  Receipt Date: 20110217
  Transmission Date: 20110831
  Serious: Yes (Death, Life-Threatening, Hospitalization)
  Sender: FDA-Public Use
  Company Number: AX239-10-0398

PATIENT
  Age: 63 Year
  Sex: Female

DRUGS (2)
  1. ABRAXANE [Suspect]
     Indication: BREAST CANCER METASTATIC
     Dosage: 220 MG
     Dates: start: 20100319
  2. LAPATINIB [Suspect]
     Indication: BREAST CANCER METASTATIC
     Dosage: 1000 MG, ORAL
     Route: 048
     Dates: start: 20100319

REACTIONS (6)
  - DYSPNOEA [None]
  - PROCEDURAL HYPOTENSION [None]
  - HAEMODIALYSIS [None]
  - DEHYDRATION [None]
  - RENAL FAILURE ACUTE [None]
  - TACHYARRHYTHMIA [None]
